FAERS Safety Report 22993550 (Version 2)
Quarter: 2023Q4

REPORT INFORMATION
  Report Type: Spontaneous
  Country: US (occurrence: US)
  Receive Date: 20230927
  Receipt Date: 20231018
  Transmission Date: 20240110
  Serious: Yes (Hospitalization)
  Sender: FDA-Public Use
  Company Number: US-ULTRAGENYX PHARMACEUTICAL INC.-US-UGX-23-00977

PATIENT
  Age: 18 Year
  Sex: Female
  Weight: 62 kg

DRUGS (2)
  1. DOJOLVI [Suspect]
     Active Substance: TRIHEPTANOIN
     Indication: Very long-chain acyl-coenzyme A dehydrogenase deficiency
     Dosage: 15 MILLILITER, QID
     Route: 048
     Dates: start: 20200818
  2. SPIRONOLACTONE [Concomitant]
     Active Substance: SPIRONOLACTONE
     Indication: Acne
     Dosage: 50 MILLIGRAM, QD

REACTIONS (1)
  - Rhabdomyolysis [Recovered/Resolved]

NARRATIVE: CASE EVENT DATE: 20230823
